FAERS Safety Report 5832231-8 (Version None)
Quarter: 2008Q3

REPORT INFORMATION
  Report Type: 
  Country: None (occurrence: None)
  Receive Date: 20080804
  Receipt Date: 20080728
  Transmission Date: 20090109
  Serious: Yes (Death)
  Sender: FDA-Public Use
  Company Number: GB-JNJFOC-20080706629

PATIENT
  Age: 20 Year
  Sex: Male

DRUGS (3)
  1. PARACETAMOL [Suspect]
  2. PARACETAMOL [Suspect]
     Indication: DRUG USE FOR UNKNOWN INDICATION
  3. NUROFEN [Suspect]
     Indication: HEADACHE

REACTIONS (2)
  - ACCIDENTAL OVERDOSE [None]
  - HEPATIC FAILURE [None]
